FAERS Safety Report 17977938 (Version 2)
Quarter: 2020Q3

REPORT INFORMATION
  Report Type: Other
  Country: PL (occurrence: PL)
  Receive Date: 20200703
  Receipt Date: 20200723
  Transmission Date: 20201103
  Serious: Yes (Other)
  Sender: FDA-Public Use
  Company Number: PL-ROCHE-2634138

PATIENT
  Age: 73 Year
  Sex: Male

DRUGS (11)
  1. FOLINIC ACID [Concomitant]
     Active Substance: LEUCOVORIN
     Dates: end: 201803
  2. OXALIPLATIN. [Suspect]
     Active Substance: OXALIPLATIN
     Indication: COLORECTAL CANCER METASTATIC
     Route: 065
     Dates: start: 201412
  3. CAPECITABINE. [Suspect]
     Active Substance: CAPECITABINE
     Dosage: UNK
     Route: 065
     Dates: start: 2017, end: 2017
  4. FLUOROURACIL. [Suspect]
     Active Substance: FLUOROURACIL
     Indication: COLORECTAL CANCER METASTATIC
     Route: 065
  5. PANITUMUMAB [Concomitant]
     Active Substance: PANITUMUMAB
  6. FOLINIC ACID [Suspect]
     Active Substance: LEUCOVORIN
     Indication: COLORECTAL CANCER METASTATIC
     Route: 065
  7. CAPECITABINE. [Suspect]
     Active Substance: CAPECITABINE
     Indication: COLORECTAL CANCER METASTATIC
     Dosage: 500 MILLIGRAM (3X)
     Route: 048
     Dates: start: 201810, end: 201903
  8. FLUOROURACIL. [Concomitant]
     Active Substance: FLUOROURACIL
     Dates: end: 201803
  9. BEVACIZUMAB. [Suspect]
     Active Substance: BEVACIZUMAB
     Indication: COLORECTAL CANCER METASTATIC
     Route: 065
     Dates: start: 201412
  10. CYCLOPHOSPHAMIDE. [Suspect]
     Active Substance: CYCLOPHOSPHAMIDE
     Indication: COLORECTAL CANCER METASTATIC
     Dosage: 50 MILLIGRAM
     Route: 065
     Dates: start: 201810, end: 201903
  11. IRINOTECAN [Concomitant]
     Active Substance: IRINOTECAN
     Dates: end: 201803

REACTIONS (4)
  - Proteinuria [Unknown]
  - Diarrhoea [Unknown]
  - Neutropenia [Unknown]
  - Polyneuropathy [Unknown]
